FAERS Safety Report 9211147 (Version 2)
Quarter: 2013Q2

REPORT INFORMATION
  Report Type: Spontaneous
  Country: US (occurrence: US)
  Receive Date: 20130404
  Receipt Date: 20130430
  Transmission Date: 20140414
  Serious: Yes (Life-Threatening, Hospitalization)
  Sender: FDA-Public Use
  Company Number: US-PFIZER INC-2013102670

PATIENT
  Age: 65 Year
  Sex: Male

DRUGS (14)
  1. REVATIO [Suspect]
     Indication: PULMONARY HYPERTENSION
     Dosage: 30 MG, 3X/DAY
     Route: 048
     Dates: start: 201206
  2. ALDACTONE [Concomitant]
     Dosage: 50 MG, 2X/DAY
     Route: 048
  3. ZAROXOLYN [Concomitant]
     Dosage: 2.5 MG,DAILY
     Route: 048
  4. METAMUCIL [Concomitant]
     Route: 048
  5. COUMADIN [Concomitant]
     Dosage: 5 MG, 1X/DAY
     Route: 048
  6. ZOFRAN [Concomitant]
     Dosage: 4 MG, 3X/DAY
     Route: 048
  7. SYNTHROID [Concomitant]
     Dosage: 50 UG, DAILY
     Route: 048
  8. LANOXIN [Concomitant]
     Dosage: 250 UG, UNK
     Route: 048
  9. LANOXIN [Concomitant]
     Dosage: 0.125 MG, 1X/DAY
     Route: 048
  10. BUMEX [Concomitant]
     Dosage: 1 MG, DAILY
     Route: 048
  11. NS 0.9% [Concomitant]
     Dosage: 100 ML, UNK
  12. TREPROSTINIL SODIUM [Concomitant]
     Dosage: UNK
  13. VITAMIN E [Concomitant]
  14. CO-Q-10 [Concomitant]
     Dosage: 100 MG- 2CAPSULES DAILY
     Route: 048

REACTIONS (4)
  - Cardiac failure [Not Recovered/Not Resolved]
  - Fall [Recovering/Resolving]
  - Dyspnoea [Not Recovered/Not Resolved]
  - Pulmonary hypertension [Unknown]
